FAERS Safety Report 6626631-6 (Version None)
Quarter: 2010Q1

REPORT INFORMATION
  Report Type: 
  Country: None (occurrence: None)
  Receive Date: 20100309
  Receipt Date: 20100309
  Transmission Date: 20100710
  Serious: Yes (Other)
  Sender: FDA-Public Use
  Company Number: None

PATIENT
  Age: 35 Year
  Sex: Male
  Weight: 127.0072 kg

DRUGS (2)
  1. CYMBALTA [Suspect]
     Indication: ANXIETY
     Dosage: 30MG DAILY PO
     Route: 048
     Dates: start: 20091201, end: 20100308
  2. CYMBALTA [Suspect]
     Indication: DEPRESSION
     Dosage: 30MG DAILY PO
     Route: 048
     Dates: start: 20091201, end: 20100308

REACTIONS (7)
  - BACK PAIN [None]
  - CONSCIOUSNESS FLUCTUATING [None]
  - CRYING [None]
  - HYPERSOMNIA [None]
  - PAIN [None]
  - PSYCHOTIC DISORDER [None]
  - SUICIDAL IDEATION [None]
